FAERS Safety Report 16183703 (Version 2)
Quarter: 2019Q2

REPORT INFORMATION
  Report Type: Spontaneous
  Country: FR (occurrence: FR)
  Receive Date: 20190411
  Receipt Date: 20190429
  Transmission Date: 20190711
  Serious: Yes (Hospitalization, Other)
  Sender: FDA-Public Use
  Company Number: FR-ALK-ABELLO A/S-2019AA001491

PATIENT

DRUGS (1)
  1. GRAZAX [Suspect]
     Active Substance: PHLEUM PRATENSE POLLEN
     Indication: IMMUNE TOLERANCE INDUCTION
     Dosage: 75000 SQ-T
     Dates: start: 20190329, end: 20190329

REACTIONS (3)
  - Malaise [Recovered/Resolved]
  - Oropharyngeal discomfort [Recovered/Resolved]
  - Pharyngeal oedema [Recovered/Resolved]

NARRATIVE: CASE EVENT DATE: 20190329
